FAERS Safety Report 14448977 (Version 3)
Quarter: 2018Q2

REPORT INFORMATION
  Report Type: Spontaneous
  Country: JP (occurrence: JP)
  Receive Date: 20180126
  Receipt Date: 20180430
  Transmission Date: 20180711
  Serious: Yes (Hospitalization)
  Sender: FDA-Public Use
  Company Number: JP-009507513-1801JPN010731

PATIENT
  Age: 76 Year
  Sex: Male

DRUGS (24)
  1. OPDIVO [Suspect]
     Active Substance: NIVOLUMAB
     Dosage: 140 MG, UNK
     Route: 041
     Dates: start: 20161201, end: 20161201
  2. SUREPOST [Concomitant]
     Active Substance: REPAGLINIDE
  3. GLACTIV [Suspect]
     Active Substance: SITAGLIPTIN
     Indication: TYPE 2 DIABETES MELLITUS
     Route: 048
  4. NIFEDIPINE. [Concomitant]
     Active Substance: NIFEDIPINE
  5. BESOFTEN [Concomitant]
     Active Substance: PENTOSAN POLYSULFATE SODIUM
  6. OPDIVO [Suspect]
     Active Substance: NIVOLUMAB
     Dosage: 140 MG, UNK
     Route: 041
     Dates: start: 20170203, end: 20170203
  7. OPDIVO [Suspect]
     Active Substance: NIVOLUMAB
     Dosage: 140 MG, UNK
     Route: 041
     Dates: start: 20170407, end: 20170407
  8. OPDIVO [Suspect]
     Active Substance: NIVOLUMAB
     Dosage: 140 MG, UNK
     Route: 041
     Dates: start: 20170428, end: 20170428
  9. OPDIVO [Suspect]
     Active Substance: NIVOLUMAB
     Dosage: 140 MG, UNK
     Route: 041
     Dates: start: 20170721, end: 20170721
  10. XYZAL [Concomitant]
     Active Substance: LEVOCETIRIZINE DIHYDROCHLORIDE
  11. OPDIVO [Suspect]
     Active Substance: NIVOLUMAB
     Dosage: 140 MG, UNK
     Route: 041
     Dates: start: 20161216, end: 20161216
  12. OPDIVO [Suspect]
     Active Substance: NIVOLUMAB
     Dosage: 140 MG, UNK
     Route: 041
     Dates: start: 20170317, end: 20170317
  13. OPDIVO [Suspect]
     Active Substance: NIVOLUMAB
     Dosage: 140 MG, UNK
     Route: 041
     Dates: start: 20170707, end: 20170707
  14. OPDIVO [Suspect]
     Active Substance: NIVOLUMAB
     Dosage: 140 MG, UNK
     Route: 041
     Dates: start: 20170106, end: 20170106
  15. OPDIVO [Suspect]
     Active Substance: NIVOLUMAB
     Dosage: 140 MG, UNK
     Route: 041
     Dates: start: 20170303, end: 20170303
  16. OPDIVO [Suspect]
     Active Substance: NIVOLUMAB
     Dosage: 140 MG, UNK
     Route: 041
     Dates: start: 20170526, end: 20170526
  17. OPDIVO [Suspect]
     Active Substance: NIVOLUMAB
     Dosage: 140 MG, UNK
     Route: 041
     Dates: start: 20170609, end: 20170609
  18. NEXIUM [Concomitant]
     Active Substance: ESOMEPRAZOLE MAGNESIUM
  19. OPDIVO [Suspect]
     Active Substance: NIVOLUMAB
     Indication: NON-SMALL CELL LUNG CANCER RECURRENT
     Dosage: 140 MG, UNK
     Route: 041
  20. OPDIVO [Suspect]
     Active Substance: NIVOLUMAB
     Dosage: 140 MG, UNK
     Route: 041
     Dates: start: 20170120, end: 20170120
  21. OPDIVO [Suspect]
     Active Substance: NIVOLUMAB
     Dosage: 140 MG, UNK
     Route: 041
     Dates: start: 20170623, end: 20170623
  22. XARELTO [Concomitant]
     Active Substance: RIVAROXABAN
  23. OPDIVO [Suspect]
     Active Substance: NIVOLUMAB
     Dosage: 140 MG, UNK
     Route: 041
     Dates: start: 20170217, end: 20170217
  24. OPDIVO [Suspect]
     Active Substance: NIVOLUMAB
     Dosage: 140 MG, UNK
     Route: 041
     Dates: start: 20170804, end: 20170804

REACTIONS (2)
  - Cellulitis [Recovered/Resolved]
  - Rash generalised [Recovered/Resolved]

NARRATIVE: CASE EVENT DATE: 20170517
